FAERS Safety Report 8361348-1 (Version None)
Quarter: 2012Q2

REPORT INFORMATION
  Report Type: 
  Country: None (occurrence: None)
  Receive Date: 20120515
  Receipt Date: 20120508
  Transmission Date: 20120825
  Serious: Yes (Hospitalization)
  Sender: FDA-Public Use
  Company Number: US-BAYER-2012-044742

PATIENT
  Sex: Female

DRUGS (3)
  1. BETASERON [Suspect]
  2. AVONEX [Concomitant]
     Dosage: 30 ?G, OW
     Route: 030
     Dates: start: 20120412
  3. AVONEX [Concomitant]
     Dosage: UNK
     Dates: start: 19990119

REACTIONS (1)
  - BLISTER [None]
